FAERS Safety Report 18305609 (Version 1)
Quarter: 2020Q3

REPORT INFORMATION
  Report Type: Spontaneous
  Country: US (occurrence: US)
  Receive Date: 20200923
  Receipt Date: 20200923
  Transmission Date: 20201103
  Serious: Yes (Other)
  Sender: FDA-Public Use
  Company Number: US-FRESENIUS MEDICAL CARE RENAL THERAPIES GROUP-FMC-2009-001077

PATIENT
  Age: 70 Year
  Sex: Male

DRUGS (8)
  1. DELFLEX WITH DEXTROSE 1.5% LOW MAGNESIUM LOW CALCIUM [Suspect]
     Active Substance: CALCIUM CHLORIDE\DEXTROSE\MAGNESIUM CHLORIDE\SODIUM CHLORIDE\SODIUM LACTATE
     Indication: END STAGE RENAL DISEASE
     Dosage: PREFILL 2L 1.5% FOR 6 HOURS FOLLOWED BY 9 HOURS 45 MINUTES ON CYCLER WITH 3 FILLS 1.5%, SINCE 15/FEB
     Route: 033
  2. AMARYL [Concomitant]
     Active Substance: GLIMEPIRIDE
  3. TOPROL XL [Concomitant]
     Active Substance: METOPROLOL SUCCINATE
  4. LASIX [Concomitant]
     Active Substance: FUROSEMIDE
  5. ANCEF [Concomitant]
     Active Substance: CEFAZOLIN SODIUM
  6. HUMULIN NOS [Concomitant]
     Active Substance: INSULIN HUMAN
  7. LEVAQUIN [Concomitant]
     Active Substance: LEVOFLOXACIN
  8. MOM [Concomitant]
     Active Substance: MAGNESIUM HYDROXIDE

REACTIONS (1)
  - Peritonitis bacterial [Recovered/Resolved]
